FAERS Safety Report 9456928 (Version 1)
Quarter: 2013Q3

REPORT INFORMATION
  Report Type: Spontaneous
  Country: US (occurrence: US)
  Receive Date: 20130813
  Receipt Date: 20130813
  Transmission Date: 20140515
  Serious: Yes (Hospitalization)
  Sender: FDA-Public Use
  Company Number: US-B.I. PHARMACEUTICALS,INC./RIDGEFIELD-2013-BI-13762BP

PATIENT
  Sex: Male
  Weight: 127.01 kg

DRUGS (8)
  1. PRADAXA [Suspect]
     Indication: ANTICOAGULANT THERAPY
     Dosage: 300 MG
     Dates: start: 20110301, end: 20110429
  2. PRADAXA [Suspect]
     Indication: ATRIAL FIBRILLATION
  3. LASIX [Concomitant]
     Dosage: 80 MG
  4. K-DUR [Concomitant]
     Dosage: 40 MEQ
  5. GEMFIBROZIL [Concomitant]
     Dosage: 1200 MG
  6. LISINOPRIL [Concomitant]
  7. SIMVASTATIN [Concomitant]
     Dosage: 20 MG
  8. SPIRONOLACTONE [Concomitant]
     Dosage: 25 MG

REACTIONS (2)
  - Lower gastrointestinal haemorrhage [Unknown]
  - Pleural effusion [Unknown]
